FAERS Safety Report 25409071 (Version 1)
Quarter: 2025Q2

REPORT INFORMATION
  Report Type: Report from Study
  Country: US (occurrence: US)
  Receive Date: 20250607
  Receipt Date: 20250607
  Transmission Date: 20250716
  Serious: Yes (Other)
  Sender: AUROBINDO
  Company Number: US-AUROBINDO-AUR-APL-2022-053532

PATIENT
  Age: 47 Year
  Sex: Male

DRUGS (6)
  1. AMPHOTERICIN B [Suspect]
     Active Substance: AMPHOTERICIN B
     Indication: Ulcerative keratitis
     Dosage: UNK UNK, EVERY HOUR
     Route: 061
  2. AMPHOTERICIN B [Suspect]
     Active Substance: AMPHOTERICIN B
     Dosage: UNK UNK, EVERY HOUR
  3. VORICONAZOLE [Suspect]
     Active Substance: VORICONAZOLE
     Indication: Ulcerative keratitis
     Dosage: UNK, EVERY HOUR
     Route: 061
  4. VORICONAZOLE [Suspect]
     Active Substance: VORICONAZOLE
     Dosage: 200 MILLIGRAM, TWO TIMES A DAY
     Route: 048
  5. NATAMYCIN [Suspect]
     Active Substance: NATAMYCIN
     Indication: Ulcerative keratitis
     Dosage: UNK, EVERY HOUR
  6. NATAMYCIN [Suspect]
     Active Substance: NATAMYCIN
     Dosage: UNK, EVERY TWO HOUR

REACTIONS (1)
  - Treatment failure [Unknown]
